FAERS Safety Report 4860417-8 (Version None)
Quarter: 2005Q4

REPORT INFORMATION
  Report Type: 
  Country: None (occurrence: None)
  Receive Date: 20051219
  Receipt Date: 20051213
  Transmission Date: 20060501
  Serious: Yes (Death)
  Sender: FDA-Public Use
  Company Number: JP-GILEAD-2005-0009018

PATIENT
  Sex: Male

DRUGS (7)
  1. HEPSERA [Suspect]
     Indication: HEPATITIS B
     Route: 048
     Dates: start: 20041112
  2. ZEFFIX [Suspect]
     Indication: HEPATIC CIRRHOSIS
     Route: 048
     Dates: start: 20020101
  3. DOMPERIDONE [Concomitant]
  4. MOSAPRIDE CITRATE [Concomitant]
  5. DIMETHICONE [Concomitant]
  6. SPIRONOLACTONE [Concomitant]
  7. BROTIZOLAM [Concomitant]

REACTIONS (2)
  - HEPATIC FAILURE [None]
  - RENAL FAILURE [None]
